FAERS Safety Report 4521905-7 (Version None)
Quarter: 2004Q4

REPORT INFORMATION
  Report Type: 
  Country: None (occurrence: None)
  Receive Date: 20041209
  Receipt Date: 20041201
  Transmission Date: 20050328
  Serious: Yes (Other)
  Sender: FDA-Public Use
  Company Number: PHBS2004CA16114

PATIENT
  Age: 51 Year
  Sex: Male

DRUGS (2)
  1. RISPERIDONE [Concomitant]
     Route: 065
  2. THIORIDAZINE HCL [Suspect]
     Indication: SCHIZOPHRENIA

REACTIONS (3)
  - ELECTROCARDIOGRAM QT PROLONGED [None]
  - HEART RATE DECREASED [None]
  - MENTAL DISORDER [None]
